FAERS Safety Report 8907821 (Version 1)
Quarter: 2012Q4

REPORT INFORMATION
  Report Type: 
  Country: US (occurrence: US)
  Receive Date: 20121113
  Receipt Date: 20121113
  Transmission Date: 20130627
  Serious: No
  Sender: FDA-Public Use
  Company Number: US-AMGEN-USASP2012010334

PATIENT
  Sex: Male
  Weight: 87.08 kg

DRUGS (6)
  1. ENBREL [Suspect]
     Indication: PRODUCT USED FOR UNKNOWN INDICATION
     Dosage: 50 mg, qwk
     Route: 058
  2. OMEPRAZOLE [Concomitant]
     Dosage: 20 mg, UNK
  3. DIPHENHYDRAM.HYD. W/PARACETA./PHENYLEPH. HYD. [Concomitant]
     Dosage: 25 mg, UNK
  4. ALBUTEROL                          /00139501/ [Concomitant]
     Dosage: 4 mg, UNK
  5. ADVIL                              /00044201/ [Concomitant]
     Dosage: 200 mg, UNK
  6. SULFASALAZIN [Concomitant]
     Dosage: 500 mg, UNK

REACTIONS (1)
  - Pneumonia [Unknown]
